FAERS Safety Report 25961618 (Version 2)
Quarter: 2025Q4

REPORT INFORMATION
  Report Type: Report from Study
  Country: US (occurrence: US)
  Receive Date: 20251027
  Receipt Date: 20251103
  Transmission Date: 20260117
  Serious: Yes (Hospitalization, Other)
  Sender: ABBVIE
  Company Number: US-ABBVIE-6514344

PATIENT
  Age: 69 Year
  Sex: Female
  Weight: 47.627 kg

DRUGS (21)
  1. CREON [Suspect]
     Active Substance: PANCRELIPASE AMYLASE\PANCRELIPASE LIPASE\PANCRELIPASE PROTEASE
     Indication: Pancreatic failure
     Dosage: FREQUENCY TEXT: THREE CAPSULES WITH MEALS AND TWO CAPSULES WITH SNACKS.?FORM STRENGTH: 36000 UNITS
     Route: 048
     Dates: start: 20250415
  2. GABAPENTIN [Concomitant]
     Active Substance: GABAPENTIN
     Indication: Neuropathy peripheral
  3. ATORVASTATIN [Concomitant]
     Active Substance: ATORVASTATIN
     Indication: Blood cholesterol
  4. ETHYLMORPHINE [Concomitant]
     Active Substance: ETHYLMORPHINE
     Indication: Blood triglycerides abnormal
  5. ONDANSETRON [Concomitant]
     Active Substance: ONDANSETRON
     Indication: Nausea
  6. LOPERAMIDE [Concomitant]
     Active Substance: LOPERAMIDE
     Indication: Diarrhoea
  7. TRAMADOL [Concomitant]
     Active Substance: TRAMADOL
     Indication: Back pain
  8. DOXYCYCLINE [Concomitant]
     Active Substance: DOXYCYCLINE
     Indication: Vasculitis
  9. FUROSEMIDE [Concomitant]
     Active Substance: FUROSEMIDE
     Indication: Fluid retention
  10. PREDNISONE [Concomitant]
     Active Substance: PREDNISONE
     Indication: Inflammation
  11. AcetaminophenK [Concomitant]
     Indication: Pain
  12. METOPROLOL [Concomitant]
     Active Substance: METOPROLOL
     Indication: Cardiac disorder
  13. DIAZEPAM [Concomitant]
     Active Substance: DIAZEPAM
     Indication: Anxiety
  14. PANTOPRAZOLE [Concomitant]
     Active Substance: PANTOPRAZOLE
     Indication: Gastrooesophageal reflux disease
  15. LISINOPRIL [Concomitant]
     Active Substance: LISINOPRIL
     Indication: Blood pressure measurement
  16. MINERALS\VITAMINS [Concomitant]
     Active Substance: MINERALS\VITAMINS
     Indication: Eye disorder
  17. BUPROPION [Concomitant]
     Active Substance: BUPROPION
     Indication: Anxiety
  18. COENZYME Q10 [Concomitant]
     Active Substance: DIETARY SUPPLEMENT\UBIDECARENONE
     Indication: Cardiac disorder
  19. ASPIRIN [Concomitant]
     Active Substance: ASPIRIN
     Indication: Cardiac disorder
  20. FENOFIBRATE [Concomitant]
     Active Substance: FENOFIBRATE
     Indication: Lipids abnormal
  21. POTASSIUM CHLORIDE [Concomitant]
     Active Substance: POTASSIUM CHLORIDE
     Indication: Blood potassium abnormal

REACTIONS (10)
  - Pain [Unknown]
  - Embedded device [Recovering/Resolving]
  - Procedural pain [Recovered/Resolved]
  - Malaise [Unknown]
  - Pancreatic stent placement [Unknown]
  - Intra-abdominal fluid collection [Unknown]
  - Pancreatic stent removal [Recovering/Resolving]
  - Procedural pain [Unknown]
  - Pancreatitis [Unknown]
  - Lipase increased [Unknown]

NARRATIVE: CASE EVENT DATE: 20250101
